FAERS Safety Report 7717481-8 (Version None)
Quarter: 2011Q3

REPORT INFORMATION
  Report Type: 
  Country: None (occurrence: None)
  Receive Date: 20110824
  Receipt Date: 20110811
  Transmission Date: 20111222
  Serious: Yes (Other)
  Sender: FDA-Public Use
  Company Number: US-1187540

PATIENT
  Sex: Female

DRUGS (2)
  1. GENTAMICIN SULFATE [Suspect]
     Indication: CATARACT OPERATION
     Dosage: INTRAOCULAR
     Route: 031
  2. VANCOMYCIN [Concomitant]

REACTIONS (4)
  - PUPIL FIXED [None]
  - IRIS DISORDER [None]
  - CORNEAL OEDEMA [None]
  - DRUG ADMINISTRATION ERROR [None]
